FAERS Safety Report 12763569 (Version 1)
Quarter: 2016Q3

REPORT INFORMATION
  Report Type: Report from Study
  Country: US (occurrence: US)
  Receive Date: 20160920
  Receipt Date: 20160920
  Transmission Date: 20161109
  Serious: Yes (Hospitalization, Other)
  Sender: FDA-Public Use
  Company Number: US-GILEAD-2016-0231402

PATIENT
  Age: 48 Year
  Sex: Male

DRUGS (2)
  1. DAKLINZA [Suspect]
     Active Substance: DACLATASVIR
     Indication: CHRONIC HEPATITIS C
     Dosage: UNK
     Route: 048
     Dates: start: 20151218, end: 201603
  2. SOFOSBUVIR [Suspect]
     Active Substance: SOFOSBUVIR
     Indication: CHRONIC HEPATITIS C
     Dosage: 400 MG, UNK
     Route: 048
     Dates: start: 20151218, end: 201603

REACTIONS (7)
  - Insomnia [Unknown]
  - Asthenia [Unknown]
  - Treatment failure [Unknown]
  - Weight decreased [Unknown]
  - Diabetes mellitus [Unknown]
  - Bacterial infection [Unknown]
  - Visual impairment [Unknown]

NARRATIVE: CASE EVENT DATE: 201605
